FAERS Safety Report 4428432-6 (Version None)
Quarter: 2004Q3

REPORT INFORMATION
  Report Type: 
  Country: None (occurrence: None)
  Receive Date: 20040813
  Receipt Date: 20040728
  Transmission Date: 20050211
  Serious: Yes (Life-Threatening)
  Sender: FDA-Public Use
  Company Number: A01200402588

PATIENT
  Age: 74 Year
  Sex: Female

DRUGS (2)
  1. ZOLPIDEM TARTRATE [Suspect]
     Indication: INSOMNIA
     Dosage: 5 MG ONCE ORAL; A FEW HOURS
     Route: 048
     Dates: start: 20040529, end: 20040529
  2. OXIRACETAM [Concomitant]

REACTIONS (2)
  - CEREBRAL INFARCTION [None]
  - COMA [None]
